FAERS Safety Report 6296262-9 (Version None)
Quarter: 2009Q3

REPORT INFORMATION
  Report Type: 
  Country: None (occurrence: None)
  Receive Date: 20090804
  Receipt Date: 20090723
  Transmission Date: 20100115
  Serious: Yes (Death)
  Sender: FDA-Public Use
  Company Number: US-PFIZER INC-2009245932

PATIENT
  Age: 32 Year
  Sex: Male

DRUGS (6)
  1. TRAZODONE HCL [Suspect]
  2. DILANTIN [Suspect]
  3. ZYPREXA [Suspect]
     Dosage: 10 MG, 1X/DAY
  4. BENADRYL [Suspect]
  5. SEROQUEL [Suspect]
  6. LEXAPRO [Suspect]

REACTIONS (2)
  - COMPLETED SUICIDE [None]
  - DRUG TOXICITY [None]
